FAERS Safety Report 9271104 (Version 1)
Quarter: 2013Q2

REPORT INFORMATION
  Report Type: Report from Study
  Country: CA (occurrence: CA)
  Receive Date: 20130506
  Receipt Date: 20130506
  Transmission Date: 20140414
  Serious: Yes (Other)
  Sender: FDA-Public Use
  Company Number: PHHY2013CA007639

PATIENT
  Sex: Female
  Weight: 81 kg

DRUGS (3)
  1. CLOZARIL [Suspect]
     Indication: SCHIZOPHRENIA
     Dosage: 200 MG, UNK
     Route: 048
     Dates: start: 20020307, end: 20121011
  2. CLOZARIL [Suspect]
     Dosage: 50 MG, UNK
     Route: 048
     Dates: start: 20130122
  3. PAROXETINE [Concomitant]
     Indication: ANXIETY DISORDER
     Dosage: 30 MG, UNK
     Route: 048
     Dates: start: 2010

REACTIONS (4)
  - Pre-eclampsia [Unknown]
  - Umbilical cord prolapse [Unknown]
  - Hypertension [Unknown]
  - Maternal exposure during pregnancy [Unknown]
